FAERS Safety Report 9321278 (Version 2)
Quarter: 2013Q3

REPORT INFORMATION
  Report Type: Spontaneous
  Country: US (occurrence: US)
  Receive Date: 20130531
  Receipt Date: 20130806
  Transmission Date: 20140515
  Serious: Yes (Other)
  Sender: FDA-Public Use
  Company Number: US-UCBSA-062049

PATIENT
  Age: 33 Year
  Sex: Female
  Weight: 79.8 kg

DRUGS (2)
  1. CIMZIA [Suspect]
     Indication: RHEUMATOID ARTHRITIS
     Dates: end: 2013
  2. PREDNISONE [Concomitant]
     Indication: RHEUMATOID ARTHRITIS
     Dosage: 5-10 MG
     Route: 048
     Dates: start: 20120601

REACTIONS (3)
  - Premature delivery [Recovered/Resolved]
  - Breech presentation [Recovered/Resolved]
  - Pregnancy [Recovered/Resolved]
